FAERS Safety Report 13296918 (Version 1)
Quarter: 2017Q1

REPORT INFORMATION
  Report Type: Spontaneous
  Country: US (occurrence: US)
  Receive Date: 20170306
  Receipt Date: 20170306
  Transmission Date: 20170428
  Serious: No
  Sender: FDA-Public Use
  Company Number: US-TEVA-736810ACC

PATIENT
  Age: 57 Year
  Sex: Female
  Weight: 58.05 kg

DRUGS (4)
  1. MUCUS D [Suspect]
     Active Substance: GUAIFENESIN\PSEUDOEPHEDRINE HYDROCHLORIDE
     Indication: RESPIRATORY TRACT CONGESTION
     Dosage: 2 DOSAGE FORMS DAILY; PSEUDOEPHEDRINE HYDROCHLORIDE 60 MG, GUAIFENESIN 600 MG
     Route: 048
     Dates: start: 20161128, end: 20161130
  2. MUCUS D [Suspect]
     Active Substance: GUAIFENESIN\PSEUDOEPHEDRINE HYDROCHLORIDE
     Indication: SINUS CONGESTION
  3. GABAPENTIN. [Concomitant]
     Active Substance: GABAPENTIN
     Dates: start: 2010
  4. MULTIVITAMINS, PLAIN [Concomitant]
     Active Substance: VITAMINS
     Dates: start: 2013

REACTIONS (2)
  - Drug ineffective [Unknown]
  - Incorrect dose administered [Unknown]

NARRATIVE: CASE EVENT DATE: 20161128
